FAERS Safety Report 24444073 (Version 2)
Quarter: 2024Q4

REPORT INFORMATION
  Report Type: Report from Study
  Country: US (occurrence: US)
  Receive Date: 20241016
  Receipt Date: 20241017
  Transmission Date: 20250115
  Serious: No
  Sender: ROCHE
  Company Number: US-ROCHE-2400107

PATIENT
  Age: 27 Year
  Sex: Female
  Weight: 142.92 kg

DRUGS (6)
  1. RITUXAN [Suspect]
     Active Substance: RITUXIMAB
     Indication: Opsoclonus myoclonus
     Dosage: FOR 4 WEEK
     Route: 042
     Dates: start: 20190228
  2. RITUXAN [Suspect]
     Active Substance: RITUXIMAB
     Indication: Eye movement disorder
     Dosage: EVERY 4 MONTHS.
     Route: 042
  3. RITUXAN [Suspect]
     Active Substance: RITUXIMAB
     Dosage: ON DAY 0 AND DAY 15, EVERY 6 MONTHS.
     Route: 042
  4. BENADRYL [Concomitant]
     Active Substance: DIPHENHYDRAMINE HYDROCHLORIDE
     Dosage: ADMINISTER 30 MINUTES PRIOUR TO EACH RITUXAN INFUSION
     Route: 042
  5. TYLENOL [Concomitant]
     Active Substance: ACETAMINOPHEN
     Dosage: ADMINISTER 30 MINUTES PRIOUR TO EACH RITUXAN INFUSION
     Route: 048
  6. SOLU-MEDROL [Concomitant]
     Active Substance: METHYLPREDNISOLONE SODIUM SUCCINATE
     Dosage: 30 MINUTES PRIOR TO INFUSION
     Route: 042

REACTIONS (3)
  - Off label use [Unknown]
  - No adverse event [Unknown]
  - Product prescribing error [Unknown]
